FAERS Safety Report 7672693-7 (Version None)
Quarter: 2011Q3

REPORT INFORMATION
  Report Type: 
  Country: None (occurrence: None)
  Receive Date: 20110809
  Receipt Date: 20110805
  Transmission Date: 20111222
  Serious: Yes (Other)
  Sender: FDA-Public Use
  Company Number: GXKR2011DE02154

PATIENT
  Sex: Female
  Weight: 2.955 kg

DRUGS (4)
  1. FOLIC ACID [Concomitant]
     Dosage: MATERNAL DOSE: 0.4 MG/DAY (GW 6-12)
     Route: 064
  2. ALPRAZOLAM [Concomitant]
     Dosage: MATERNAL DOSE: 0.25 MG/DAY (ONLY TWO TIMES BETWEEN GW 6-20)
     Route: 064
  3. PAROXETINE HCL [Suspect]
     Dosage: MATERNAL DOSE: 10 MG/DAY (GW 0-6)
     Route: 064
  4. CITALOPRAM HYDROBROMIDE [Suspect]
     Dosage: MATERNAL DOSE: 15 MG/DAY (GW 25-40)
     Route: 064

REACTIONS (2)
  - SMALL FOR DATES BABY [None]
  - MATERNAL EXPOSURE DURING PREGNANCY [None]
